FAERS Safety Report 8559273-6 (Version None)
Quarter: 2012Q3

REPORT INFORMATION
  Report Type: 
  Country: None (occurrence: None)
  Receive Date: 20120802
  Receipt Date: 20120726
  Transmission Date: 20120928
  Serious: Yes (Life-Threatening, Hospitalization)
  Sender: FDA-Public Use
  Company Number: PHHY2012CN057375

PATIENT
  Age: 20 Year
  Sex: Male

DRUGS (1)
  1. SEBIVO [Suspect]
     Indication: HEPATITIS B
     Dosage: 600 MG, QD
     Route: 048
     Dates: start: 20111001, end: 20120703

REACTIONS (17)
  - GLOMERULONEPHRITIS PROLIFERATIVE [None]
  - GAIT DISTURBANCE [None]
  - MUSCLE ATROPHY [None]
  - RHABDOMYOLYSIS [None]
  - METABOLIC ACIDOSIS [None]
  - FATIGUE [None]
  - BIOPSY MUSCLE ABNORMAL [None]
  - RENAL FAILURE ACUTE [None]
  - OEDEMA PERIPHERAL [None]
  - MULTI-ORGAN DISORDER [None]
  - ASTHENIA [None]
  - MYOSITIS [None]
  - BLOOD CREATINE PHOSPHOKINASE INCREASED [None]
  - MUSCULAR WEAKNESS [None]
  - MYOGLOBIN BLOOD INCREASED [None]
  - CHEST PAIN [None]
  - DYSPNOEA [None]
